FAERS Safety Report 7541923-4 (Version None)
Quarter: 2011Q2

REPORT INFORMATION
  Report Type: 
  Country: None (occurrence: None)
  Receive Date: 20110524
  Receipt Date: 20110314
  Transmission Date: 20111010
  Serious: No
  Sender: FDA-Public Use
  Company Number: 029238

PATIENT

DRUGS (1)
  1. CIMZIA [Suspect]
     Dosage: 400 UNITS UNSPECIFIED SUBCUTANEOUS
     Route: 058

REACTIONS (2)
  - HYPOAESTHESIA [None]
  - VISUAL IMPAIRMENT [None]
